FAERS Safety Report 4776124-6 (Version None)
Quarter: 2005Q3

REPORT INFORMATION
  Report Type: 
  Country: None (occurrence: None)
  Receive Date: 20050914
  Receipt Date: 20050323
  Transmission Date: 20060218
  Serious: Yes (Death)
  Sender: FDA-Public Use
  Company Number: 163-20785-05030642

PATIENT
  Age: 76 Year
  Sex: Male

DRUGS (2)
  1. THALOMID [Suspect]
     Indication: MALIGNANT MELANOMA
     Dosage: 50MG,QHS, ORAL
     Route: 048
     Dates: start: 20040519, end: 20041020
  2. TEMODAR [Concomitant]

REACTIONS (2)
  - DEATH [None]
  - DISEASE PROGRESSION [None]
